FAERS Safety Report 20890341 (Version 3)
Quarter: 2022Q3

REPORT INFORMATION
  Report Type: Report from Study
  Country: AU (occurrence: AU)
  Receive Date: 20220530
  Receipt Date: 20220824
  Transmission Date: 20221027
  Serious: Yes (Other)
  Sender: FDA-Public Use
  Company Number: AU-NOVARTISPH-NVSC2022AU073467

PATIENT
  Age: 48 Year
  Sex: Female

DRUGS (1)
  1. KESIMPTA [Suspect]
     Active Substance: OFATUMUMAB
     Indication: Relapsing-remitting multiple sclerosis
     Dosage: 20 MG, QMO
     Route: 058
     Dates: start: 20220322

REACTIONS (12)
  - Stiff person syndrome [Unknown]
  - Loss of consciousness [Unknown]
  - Kidney infection [Unknown]
  - Abdominal distension [Unknown]
  - Poor quality sleep [Unknown]
  - Pollakiuria [Unknown]
  - Back pain [Unknown]
  - Pyrexia [Unknown]
  - Injury [Unknown]
  - Fall [Unknown]
  - Nausea [Unknown]
  - Vomiting [Unknown]

NARRATIVE: CASE EVENT DATE: 20220301
